FAERS Safety Report 6670883-3 (Version None)
Quarter: 2010Q2

REPORT INFORMATION
  Report Type: 
  Country: None (occurrence: None)
  Receive Date: 20100406
  Receipt Date: 20100406
  Transmission Date: 20101027
  Serious: Yes (Other)
  Sender: FDA-Public Use
  Company Number: None

PATIENT
  Age: 44 Year
  Sex: Female
  Weight: 89.3586 kg

DRUGS (1)
  1. SAVELLA [Suspect]
     Indication: FIBROMYALGIA
     Dosage: 25 MG DAILY PO
     Route: 048
     Dates: start: 20100330, end: 20100331

REACTIONS (5)
  - DECREASED APPETITE [None]
  - DIARRHOEA [None]
  - FEELING HOT [None]
  - NAUSEA [None]
  - VOMITING [None]
